FAERS Safety Report 6500431-X (Version None)
Quarter: 2009Q4

REPORT INFORMATION
  Report Type: 
  Country: None (occurrence: None)
  Receive Date: 20091216
  Receipt Date: 20091208
  Transmission Date: 20100525
  Serious: Yes (Hospitalization)
  Sender: FDA-Public Use
  Company Number: US-SANOFI-AVENTIS-2009SA006291

PATIENT
  Sex: Female

DRUGS (2)
  1. MULTAQ [Suspect]
     Route: 065
  2. AMIODARONE HCL [Concomitant]

REACTIONS (1)
  - HEPATIC FAILURE [None]
